FAERS Safety Report 14157940 (Version 3)
Quarter: 2017Q4

REPORT INFORMATION
  Report Type: Spontaneous
  Country: IT (occurrence: IT)
  Receive Date: 20171103
  Receipt Date: 20171229
  Transmission Date: 20180321
  Serious: Yes (Other)
  Sender: FDA-Public Use
  Company Number: IT-009507513-1710ITA014574

PATIENT
  Age: 80 Year
  Sex: Female

DRUGS (4)
  1. WARFARIN [Concomitant]
     Active Substance: WARFARIN
     Indication: ANTICOAGULANT THERAPY
  2. HYDROCHLOROTHIAZIDE (+) VALSARTAN [Concomitant]
     Active Substance: HYDROCHLOROTHIAZIDE\VALSARTAN
     Indication: HYPERTENSION
  3. VALSARTAN. [Concomitant]
     Active Substance: VALSARTAN
  4. ZEPATIER [Suspect]
     Active Substance: ELBASVIR\GRAZOPREVIR
     Indication: CHRONIC HEPATITIS C
     Dosage: 1 DF, QD
     Route: 048
     Dates: start: 20170630, end: 20170926

REACTIONS (5)
  - Dysarthria [Unknown]
  - Disorientation [Unknown]
  - Blood pressure inadequately controlled [Recovered/Resolved]
  - Transient ischaemic attack [Recovered/Resolved]
  - Anticoagulation drug level abnormal [Recovered/Resolved]

NARRATIVE: CASE EVENT DATE: 201707
